FAERS Safety Report 4318498-6 (Version None)
Quarter: 2004Q1

REPORT INFORMATION
  Report Type: 
  Country: None (occurrence: None)
  Receive Date: 20040316
  Receipt Date: 20040316
  Transmission Date: 20041129
  Serious: Yes (Hospitalization)
  Sender: FDA-Public Use
  Company Number: None

PATIENT
  Age: 32 Year
  Sex: Male

DRUGS (3)
  1. TRILEPTAL [Suspect]
     Dosage: 600 MG BID PO [8 DOSES]
     Route: 048
     Dates: start: 20030622, end: 20030625
  2. LEVAQUIN [Suspect]
     Indication: HYPOMANIA
     Dosage: 500 MG DAILY PO [1 DOSE]
     Route: 048
     Dates: start: 20030625
  3. LEVAQUIN [Suspect]
     Indication: MOOD ALTERED
     Dosage: 500 MG DAILY PO [1 DOSE]
     Route: 048
     Dates: start: 20030625

REACTIONS (2)
  - EYE PAIN [None]
  - STEVENS-JOHNSON SYNDROME [None]
